FAERS Safety Report 7118681-0 (Version None)
Quarter: 2010Q4

REPORT INFORMATION
  Report Type: 
  Country: None (occurrence: None)
  Receive Date: 20101123
  Receipt Date: 20101103
  Transmission Date: 20110411
  Serious: Yes (Other)
  Sender: FDA-Public Use
  Company Number: US-BAYER-200943249NA

PATIENT
  Age: 38 Year
  Sex: Female
  Weight: 66 kg

DRUGS (13)
  1. YASMIN [Suspect]
     Indication: PRODUCT USED FOR UNKNOWN INDICATION
     Route: 048
     Dates: start: 20050801, end: 20090801
  2. YAZ [Suspect]
     Indication: ORAL CONTRACEPTION
     Route: 048
     Dates: start: 20070901, end: 20090908
  3. REGLAN [Concomitant]
     Indication: HEPATIC CYST
  4. ASCORBIC ACID [Concomitant]
  5. PROVENTIL [Concomitant]
     Dates: start: 20070301
  6. AMOXICILLIN [Concomitant]
     Dates: start: 20061101
  7. CLINDAMYCIN [Concomitant]
     Dates: start: 20091201
  8. MELOXICAM [Concomitant]
     Dates: start: 20081101
  9. NSAIDS [Concomitant]
  10. ZYRTEC [Concomitant]
     Indication: MULTIPLE ALLERGIES
     Dates: start: 19970101, end: 20100101
  11. NEXIUM [Concomitant]
     Indication: GASTROOESOPHAGEAL REFLUX DISEASE
     Dates: start: 20080101
  12. CARAFATE [Concomitant]
  13. OMEPRAZOLE [Concomitant]

REACTIONS (6)
  - ABDOMINAL PAIN UPPER [None]
  - BILIARY COLIC [None]
  - CHOLECYSTITIS CHRONIC [None]
  - DYSPEPSIA [None]
  - NAUSEA [None]
  - SPHINCTER OF ODDI DYSFUNCTION [None]
